FAERS Safety Report 5087384-9 (Version None)
Quarter: 2006Q3

REPORT INFORMATION
  Report Type: 
  Country: None (occurrence: None)
  Receive Date: 20060822
  Receipt Date: 20060822
  Transmission Date: 20061208
  Serious: Yes (Hospitalization)
  Sender: FDA-Public Use
  Company Number: None

PATIENT
  Age: 55 Year
  Sex: Male
  Weight: 121.564 kg

DRUGS (7)
  1. CISPLATIN [Suspect]
     Indication: SMALL CELL LUNG CANCER STAGE UNSPECIFIED
     Dosage: 120 MG ONCE IV
     Route: 042
     Dates: start: 20060419
  2. FLUPHENAZINE [Concomitant]
  3. LORAZEPAM [Concomitant]
  4. PROPRANOLOL [Concomitant]
  5. FLUOXETINE [Concomitant]
  6. TEMAZEPAM [Concomitant]
  7. COMBIVENT MDI [Concomitant]

REACTIONS (7)
  - BACTERIAL SEPSIS [None]
  - HYPONATRAEMIA [None]
  - HYPOTENSION [None]
  - MENTAL STATUS CHANGES [None]
  - NEUTROPENIA [None]
  - PNEUMONIA [None]
  - RESPIRATORY FAILURE [None]
